FAERS Safety Report 5143836-4 (Version None)
Quarter: 2006Q4

REPORT INFORMATION
  Report Type: 
  Country: None (occurrence: None)
  Receive Date: 20061106
  Receipt Date: 20060929
  Transmission Date: 20070319
  Serious: Yes (Hospitalization)
  Sender: FDA-Public Use
  Company Number: CA-AMGEN-US195196

PATIENT
  Sex: Male
  Weight: 104 kg

DRUGS (6)
  1. KEPIVANCE [Suspect]
     Indication: STOMATITIS
     Route: 058
     Dates: start: 20060824
  2. ETOPOSIDE [Concomitant]
     Route: 065
     Dates: start: 20060427, end: 20060427
  3. MELPHALAN [Concomitant]
     Route: 065
     Dates: start: 20060428, end: 20060428
  4. ONDANSETRON [Concomitant]
     Route: 048
     Dates: start: 20060427, end: 20060429
  5. DEXAMETHASONE TAB [Concomitant]
     Route: 048
     Dates: start: 20060429, end: 20060430
  6. DOMPERIDONE [Concomitant]
     Route: 065
     Dates: start: 20060502, end: 20060508

REACTIONS (4)
  - CLOSTRIDIAL INFECTION [None]
  - COLECTOMY [None]
  - GASTROINTESTINAL NECROSIS [None]
  - NEUTROPENIC COLITIS [None]
